FAERS Safety Report 5271365-6 (Version None)
Quarter: 2007Q1

REPORT INFORMATION
  Report Type: 
  Country: None (occurrence: None)
  Receive Date: 20070321
  Receipt Date: 20070314
  Transmission Date: 20070707
  Serious: Yes (Hospitalization)
  Sender: FDA-Public Use
  Company Number: FR-SANOFI-SYNTHELABO-A02200700750

PATIENT
  Age: 81 Year
  Sex: Male

DRUGS (3)
  1. MABTHERA [Concomitant]
     Indication: MANTLE CELL LYMPHOMA STAGE IV
     Route: 042
     Dates: start: 20070201, end: 20070201
  2. GEMZAR [Suspect]
     Indication: MANTLE CELL LYMPHOMA STAGE IV
     Route: 042
     Dates: start: 20070131, end: 20070131
  3. ELOXATIN [Suspect]
     Indication: MANTLE CELL LYMPHOMA STAGE IV
     Route: 042
     Dates: start: 20070131, end: 20070131

REACTIONS (2)
  - BONE MARROW FAILURE [None]
  - PYREXIA [None]
